FAERS Safety Report 18308816 (Version 1)
Quarter: 2020Q3

REPORT INFORMATION
  Report Type: Spontaneous
  Country: GB (occurrence: GB)
  Receive Date: 20200924
  Receipt Date: 20200924
  Transmission Date: 20201103
  Serious: Yes (Hospitalization)
  Sender: FDA-Public Use
  Company Number: GB-ALLERGAN-2036072US

PATIENT
  Sex: Male
  Weight: 41.8 kg

DRUGS (4)
  1. CITALOPRAM HYDROBROMIDE ? BP [Suspect]
     Active Substance: CITALOPRAM HYDROBROMIDE
     Indication: DEPRESSION
     Dosage: 10 MG
     Route: 048
  2. CITALOPRAM HYDROBROMIDE ? BP [Suspect]
     Active Substance: CITALOPRAM HYDROBROMIDE
     Dosage: 20 MG
     Route: 048
     Dates: start: 20200804, end: 20200811
  3. CLENIL MODULITE [Concomitant]
     Active Substance: BECLOMETHASONE DIPROPIONATE
     Indication: PRODUCT USED FOR UNKNOWN INDICATION
     Dosage: 4 DF, QD
     Route: 055
  4. SALBUTAMOL [Concomitant]
     Active Substance: ALBUTEROL
     Indication: PRODUCT USED FOR UNKNOWN INDICATION
     Dosage: 200 ?G, PRN
     Route: 055

REACTIONS (8)
  - Morbid thoughts [Unknown]
  - Dizziness [Unknown]
  - Vomiting [Recovered/Resolved]
  - Vision blurred [Unknown]
  - Diarrhoea [Unknown]
  - Nausea [Recovered/Resolved]
  - Headache [Unknown]
  - Product administered to patient of inappropriate age [Unknown]
